FAERS Safety Report 4761483-0 (Version None)
Quarter: 2005Q3

REPORT INFORMATION
  Report Type: 
  Country: None (occurrence: None)
  Receive Date: 20050901
  Receipt Date: 20050901
  Transmission Date: 20060218
  Serious: Yes (Hospitalization, Other)
  Sender: FDA-Public Use
  Company Number: None

PATIENT
  Sex: Female
  Weight: 89.22 kg

DRUGS (5)
  1. TAXOL [Suspect]
     Indication: ENDOMETRIAL CANCER
     Dosage: SEE IMAGE
     Route: 042
     Dates: start: 20050804, end: 20050804
  2. CARBOPLATIN [Suspect]
     Dosage: SEE IMAGE
     Route: 042
     Dates: start: 20050804, end: 20050804
  3. MS CONTIN [Concomitant]
  4. PERCOCET [Concomitant]
  5. VICODIN [Concomitant]

REACTIONS (6)
  - BLOOD CREATINE INCREASED [None]
  - CONDITION AGGRAVATED [None]
  - FLANK PAIN [None]
  - HYDRONEPHROSIS [None]
  - PULMONARY EMBOLISM [None]
  - URETERIC OBSTRUCTION [None]
